FAERS Safety Report 19745708 (Version 1)
Quarter: 2021Q3

REPORT INFORMATION
  Report Type: Spontaneous
  Country: GB (occurrence: GB)
  Receive Date: 20210825
  Receipt Date: 20210825
  Transmission Date: 20211014
  Serious: Yes (Hospitalization, Other)
  Sender: FDA-Public Use
  Company Number: NVSC2021GB183332

PATIENT
  Age: 67 Year
  Sex: Female
  Weight: 65.9 kg

DRUGS (36)
  1. AMOXICILLIN. [Concomitant]
     Active Substance: AMOXICILLIN
     Indication: PRODUCT USED FOR UNKNOWN INDICATION
     Dosage: UNK
     Route: 065
     Dates: start: 20210427
  2. MEROPENEM. [Concomitant]
     Active Substance: MEROPENEM
     Indication: PRODUCT USED FOR UNKNOWN INDICATION
     Dosage: UNK
     Route: 042
  3. ETOPOSIDE. [Suspect]
     Active Substance: ETOPOSIDE
     Indication: SMALL CELL LUNG CANCER EXTENSIVE STAGE
     Dosage: 164 MG
     Route: 065
     Dates: start: 20210401
  4. DEXAMETHASONE. [Concomitant]
     Active Substance: DEXAMETHASONE
     Dosage: 8 MG
     Route: 065
     Dates: start: 20210610, end: 20210610
  5. METOCLOPRAMIDE. [Concomitant]
     Active Substance: METOCLOPRAMIDE
     Indication: PRODUCT USED FOR UNKNOWN INDICATION
     Dosage: UNK UNK, PRN (NAUSEA AND VOMITING. 10 MG, WHENREQUIRED WITH A MINIMUM DOSAGEINTERVAL OF 6 HOURS AND
     Route: 065
     Dates: start: 20210620
  6. METOCLOPRAMIDE HYDROCHLORIDE. [Concomitant]
     Active Substance: METOCLOPRAMIDE HYDROCHLORIDE
     Indication: NAUSEA
     Dosage: 10 MG (NAUSEA AND VOMITING. 10 MG, WHENREQUIRED WITH A MINIMUM DOSAGEINTERVAL OF 6 HOURS AND A MAXIM
     Route: 065
     Dates: start: 20210620
  7. METOCLOPRAMIDE HYDROCHLORIDE. [Concomitant]
     Active Substance: METOCLOPRAMIDE HYDROCHLORIDE
     Indication: VOMITING
  8. NICOTINE. [Concomitant]
     Active Substance: NICOTINE
     Indication: PRODUCT USED FOR UNKNOWN INDICATION
     Dosage: 21 MG, Q24H (21MG/24HOUR TRANSDERMAL PATCH)
     Route: 062
     Dates: start: 20210522
  9. ATEZOLIZUMAB. [Suspect]
     Active Substance: ATEZOLIZUMAB
     Indication: SMALL CELL LUNG CANCER EXTENSIVE STAGE
     Dosage: 1200 MG, TIW (DATE OF MOST RECENT DOSE OF STUDY DRUG PRIOR TO AE:13/MAY/2021ON 10?JUN?2021, RECEIVED
     Route: 041
     Dates: start: 20210401
  10. DEXAMETHASONE. [Concomitant]
     Active Substance: DEXAMETHASONE
     Indication: PRODUCT USED FOR UNKNOWN INDICATION
     Dosage: UNK
     Route: 065
     Dates: start: 20210422, end: 20210422
  11. DEXAMETHASONE. [Concomitant]
     Active Substance: DEXAMETHASONE
     Dosage: 8 MG
     Route: 065
     Dates: start: 20210513, end: 20210513
  12. FILGRASTIM [Concomitant]
     Active Substance: FILGRASTIM
     Indication: PRODUCT USED FOR UNKNOWN INDICATION
     Dosage: 30 MILLION UNITS/ 0.5ML INJECTION
     Route: 065
     Dates: start: 20210625, end: 20210628
  13. ONDANSETRON [Concomitant]
     Active Substance: ONDANSETRON
     Indication: PRODUCT USED FOR UNKNOWN INDICATION
     Dosage: 8 MG
     Route: 065
     Dates: start: 20210513, end: 20210513
  14. BISACODYL. [Concomitant]
     Active Substance: BISACODYL
     Indication: PRODUCT USED FOR UNKNOWN INDICATION
     Dosage: 2 DF, BID
     Route: 065
     Dates: start: 20210426
  15. PARACETAMOL [Concomitant]
     Active Substance: ACETAMINOPHEN
     Indication: PRODUCT USED FOR UNKNOWN INDICATION
     Dosage: 1 G, PRN (1G, WHEN REQUIRED WITH A MINIMUM DOSAGE INTERVAL OF 4 HOURS AND A MAXIMUM OF 4 DOSES PER 2
     Route: 065
     Dates: start: 20210522
  16. PARACETAMOL [Concomitant]
     Active Substance: ACETAMINOPHEN
     Dosage: UNK UNK, QID
     Route: 065
     Dates: start: 20210620
  17. LAXIDO [Concomitant]
     Active Substance: POLYETHYLENE GLYCOL 3350\POTASSIUM CHLORIDE\SODIUM BICARBONATE\SODIUM CHLORIDE
     Indication: PRODUCT USED FOR UNKNOWN INDICATION
     Dosage: UNK
     Route: 065
  18. MOVICOL [Concomitant]
     Active Substance: POLYETHYLENE GLYCOL 3350\POTASSIUM CHLORIDE\SODIUM BICARBONATE\SODIUM CHLORIDE
     Indication: PRODUCT USED FOR UNKNOWN INDICATION
     Dosage: UNK UNK, PRN
     Route: 065
     Dates: start: 20210427
  19. NOCTEC [Concomitant]
     Active Substance: CHLORAL HYDRATE
     Indication: PRODUCT USED FOR UNKNOWN INDICATION
     Dosage: UNK UNK, QD
     Route: 065
     Dates: start: 20210522
  20. PARACETAMOL [Concomitant]
     Active Substance: ACETAMINOPHEN
     Dosage: UNK
     Route: 065
  21. RAMIPRIL. [Concomitant]
     Active Substance: RAMIPRIL
     Indication: PRODUCT USED FOR UNKNOWN INDICATION
     Dosage: UNK, QD
     Route: 065
     Dates: start: 2011
  22. SANDO K [Concomitant]
     Indication: PRODUCT USED FOR UNKNOWN INDICATION
     Dosage: UNK UNK, TID
     Route: 065
     Dates: start: 20210623, end: 20210626
  23. GLYCEROL [Concomitant]
     Active Substance: GLYCERIN
     Indication: PRODUCT USED FOR UNKNOWN INDICATION
     Dosage: UNK
     Route: 065
     Dates: start: 20210430
  24. MACROGOL [Concomitant]
     Active Substance: POLYETHYLENE GLYCOLS
     Indication: PRODUCT USED FOR UNKNOWN INDICATION
     Dosage: UNK
     Route: 065
  25. CARBOPLATIN. [Suspect]
     Active Substance: CARBOPLATIN
     Indication: SMALL CELL LUNG CANCER EXTENSIVE STAGE
     Dosage: 450 MG
     Route: 065
     Dates: start: 20210401
  26. AMLODIPINE [Concomitant]
     Active Substance: AMLODIPINE BESYLATE
     Indication: PRODUCT USED FOR UNKNOWN INDICATION
     Dosage: UNK
     Route: 065
     Dates: start: 2011
  27. NICOTINE. [Concomitant]
     Active Substance: NICOTINE
     Indication: PRODUCT USED FOR UNKNOWN INDICATION
     Dosage: 1 MG, PRN (1MG ORAL SPRAY MANAGEMENT OF NICOTINE WITHDRAWAL. 1 TO 2 SPRAYS, WHEN REQUIRED WITH A MIN
     Route: 048
     Dates: start: 20210522
  28. ONDANSETRON [Concomitant]
     Active Substance: ONDANSETRON
     Dosage: 8 MG
     Route: 065
     Dates: start: 20210610, end: 20210610
  29. ACIDEX [Concomitant]
     Indication: DYSPEPSIA
     Dosage: UNK UNK, TID (PEPTAC ANISEED ORAL LIQUID SUGAR?FREE,NOCTE (10 ? 20) ML NOCTE)
     Route: 048
     Dates: start: 20210620
  30. PHOSPHATE SANDOZ [Concomitant]
     Active Substance: SODIUM PHOSPHATE, MONOBASIC, ANHYDROUS
     Indication: PRODUCT USED FOR UNKNOWN INDICATION
     Dosage: UNK UNK, BID (EFFERVESCENT)
     Route: 065
     Dates: start: 20210527, end: 20210529
  31. CO?AMOXICLAV [Concomitant]
     Active Substance: AMOXICILLIN\CLAVULANATE POTASSIUM
     Indication: PRODUCT USED FOR UNKNOWN INDICATION
     Dosage: UNK, TID (AMOXICILLIN 500MG +POTASSIUM CLAVUNALATE 125MG)
     Route: 065
     Dates: start: 20210522, end: 20210531
  32. BISACODYL. [Concomitant]
     Active Substance: BISACODYL
     Dosage: 2 DF, BID
     Route: 065
     Dates: start: 20210426
  33. BISOPROLOL [Concomitant]
     Active Substance: BISOPROLOL
     Indication: PRODUCT USED FOR UNKNOWN INDICATION
     Dosage: UNK UNK, QD
     Route: 065
     Dates: start: 2019
  34. THIAMINE. [Concomitant]
     Active Substance: THIAMINE
     Indication: PRODUCT USED FOR UNKNOWN INDICATION
     Dosage: UNK UNK, TID (PREVENT OR TREAT VITAMIN B DEFICIENCY.PRESCRIBED TO BE TAKEN AFTERHOSPITALISATION WITH
     Route: 065
     Dates: start: 20210624, end: 20210628
  35. ETOPOSIDE. [Suspect]
     Active Substance: ETOPOSIDE
     Dosage: 600 MG
     Route: 048
     Dates: start: 20210423
  36. SENNOSIDES A+B [Concomitant]
     Active Substance: SENNOSIDES A AND B
     Indication: PRODUCT USED FOR UNKNOWN INDICATION
     Dosage: UNK UNK, QD
     Route: 065
     Dates: start: 20210522

REACTIONS (9)
  - Abdominal pain [Recovered/Resolved]
  - Neutropenic sepsis [Recovered/Resolved]
  - Constipation [Unknown]
  - Back pain [Not Recovered/Not Resolved]
  - Abdominal pain [Recovered/Resolved]
  - Neutropenic sepsis [Recovered/Resolved]
  - Endometrial cancer [Not Recovered/Not Resolved]
  - Immune-mediated enterocolitis [Recovered/Resolved]
  - Thrombocytopenia [Recovered/Resolved]

NARRATIVE: CASE EVENT DATE: 20210404
